FAERS Safety Report 13609555 (Version 1)
Quarter: 2017Q2

REPORT INFORMATION
  Report Type: Spontaneous
  Country: FR (occurrence: FR)
  Receive Date: 20170602
  Receipt Date: 20170602
  Transmission Date: 20170830
  Serious: Yes (Congenital Anomaly, Other)
  Sender: FDA-Public Use
  Company Number: FR-ABBVIE-17P-056-1994771-00

PATIENT
  Sex: Male

DRUGS (1)
  1. DEPAKINE [Suspect]
     Active Substance: VALPROATE SODIUM
     Indication: MATERNAL EXPOSURE TIMING UNSPECIFIED
     Route: 064

REACTIONS (19)
  - Myopia [Unknown]
  - Marfan^s syndrome [Not Recovered/Not Resolved]
  - Hyperacusis [Unknown]
  - Respiratory distress [Unknown]
  - Language disorder [Unknown]
  - Ear infection [Unknown]
  - Echolalia [Unknown]
  - Dyspraxia [Unknown]
  - Scoliosis [Unknown]
  - Autism spectrum disorder [Not Recovered/Not Resolved]
  - Inguinal hernia [Unknown]
  - Gastrooesophageal reflux disease [Unknown]
  - Motor developmental delay [Unknown]
  - Respiratory tract infection [Unknown]
  - Tooth malformation [Unknown]
  - Hypotonia neonatal [Unknown]
  - Stereotypy [Unknown]
  - Foot deformity [Unknown]
  - Foetal exposure during pregnancy [Unknown]

NARRATIVE: CASE EVENT DATE: 2006
